FAERS Safety Report 6905126-6 (Version None)
Quarter: 2010Q3

REPORT INFORMATION
  Report Type: 
  Country: None (occurrence: None)
  Receive Date: 20100804
  Receipt Date: 20091009
  Transmission Date: 20110219
  Serious: Yes (Hospitalization)
  Sender: FDA-Public Use
  Company Number: US-PFIZER INC-2009231334

PATIENT
  Sex: Female
  Weight: 59.41 kg

DRUGS (5)
  1. LYRICA [Suspect]
     Indication: FIBROMYALGIA
     Dosage: 75 MG, 1X/DAY
     Dates: start: 20090618, end: 20090621
  2. FENTANYL [Concomitant]
     Dosage: UNK
     Route: 062
  3. SOMA [Concomitant]
     Dosage: 350 MG, 3X/DAY
  4. VICODIN [Concomitant]
     Dosage: UNK
  5. XANAX [Concomitant]
     Dosage: UNK

REACTIONS (2)
  - DIZZINESS [None]
  - LOSS OF CONSCIOUSNESS [None]
